FAERS Safety Report 8819351 (Version 2)
Quarter: 2013Q4

REPORT INFORMATION
  Report Type: Spontaneous
  Country: US (occurrence: US)
  Receive Date: 20121001
  Receipt Date: 20131030
  Transmission Date: 20140711
  Serious: Yes (Hospitalization)
  Sender: FDA-Public Use
  Company Number: US-JNJFOC-20120909044

PATIENT
  Age: 55 Year
  Sex: Female
  Weight: 86.18 kg

DRUGS (3)
  1. SIMPONI [Suspect]
     Indication: RHEUMATOID ARTHRITIS
     Route: 058
     Dates: start: 2009
  2. LEVOTHROID [Concomitant]
     Indication: HYPOTHYROIDISM
     Dosage: .15 EVERY OTHER DAY THEN .175 EVERY OTHER DAY
     Route: 048
  3. RANITIDINE [Concomitant]
     Indication: GASTROOESOPHAGEAL REFLUX DISEASE
     Route: 048
     Dates: start: 2002

REACTIONS (1)
  - Uterine cancer [Recovered/Resolved]
